FAERS Safety Report 4310167-1 (Version None)
Quarter: 2004Q1

REPORT INFORMATION
  Report Type: 
  Country: None (occurrence: None)
  Receive Date: 20040302
  Receipt Date: 20040302
  Transmission Date: 20041129
  Serious: Yes (Hospitalization)
  Sender: FDA-Public Use
  Company Number: None

PATIENT
  Age: 3 Year
  Sex: Female
  Weight: 22 kg

DRUGS (2)
  1. PEG ASPARAGINAISE [Suspect]
     Indication: ACUTE LYMPHOCYTIC LEUKAEMIA
     Dosage: 1975 IV X 1 IM
     Route: 030
     Dates: start: 20040229
  2. CYTARABINE [Concomitant]

REACTIONS (4)
  - BLOOD PRESSURE DECREASED [None]
  - FACE OEDEMA [None]
  - HYPERSENSITIVITY [None]
  - RASH PRURITIC [None]
